FAERS Safety Report 23269880 (Version 1)
Quarter: 2023Q4

REPORT INFORMATION
  Report Type: Spontaneous
  Country: US (occurrence: US)
  Receive Date: 20231207
  Receipt Date: 20231207
  Transmission Date: 20240110
  Serious: No
  Sender: FDA-Public Use
  Company Number: US-drreddys-SPO/USA/23/0187226

PATIENT
  Age: 82 Year
  Sex: Female

DRUGS (1)
  1. CLONIDINE [Suspect]
     Active Substance: CLONIDINE
     Indication: Hypertension
     Route: 062
     Dates: start: 20231022

REACTIONS (5)
  - Pruritus [Unknown]
  - Anxiety [Unknown]
  - Weight decreased [Unknown]
  - Abdominal pain upper [Unknown]
  - Expired product administered [Unknown]
